FAERS Safety Report 8119977-6 (Version None)
Quarter: 2012Q1

REPORT INFORMATION
  Report Type: 
  Country: None (occurrence: None)
  Receive Date: 20120203
  Receipt Date: 20120120
  Transmission Date: 20120608
  Serious: Yes (Hospitalization)
  Sender: FDA-Public Use
  Company Number: JPI-P-019061

PATIENT
  Age: 34 Year
  Sex: Female
  Weight: 105.2345 kg

DRUGS (33)
  1. LACTULOSE [Concomitant]
  2. OMEPRAZOLE [Concomitant]
  3. ALPHA LIPOIC ACID [Concomitant]
  4. AMLODIPINE [Concomitant]
  5. CLONIDINE [Concomitant]
  6. XYREM [Suspect]
     Indication: CATAPLEXY
     Dosage: 3.5; 6 (1ST DOSE/2.5 GM 2ND DOSE, 3 GM, 2 IN 1 D) ORAL
     Route: 048
     Dates: start: 20111001, end: 20110101
  7. XYREM [Suspect]
     Indication: CATAPLEXY
     Dosage: 3.5; 6 (1ST DOSE/2.5 GM 2ND DOSE, 3 GM, 2 IN 1 D) ORAL
     Route: 048
     Dates: start: 20110101
  8. FLUTICASONE PROPIONATE W/SALMETEROL [Concomitant]
  9. HYDROCHLOROTHIAZIDE [Concomitant]
  10. SCOPOLAMINE [Suspect]
     Indication: PRODUCT USED FOR UNKNOWN INDICATION
  11. DESVENLAFAXINE SUCCINATE [Concomitant]
  12. RIFAXIMIN [Concomitant]
  13. HYDROCORTISONE [Concomitant]
  14. PRASTERONE [Concomitant]
  15. DEXMETHYLPHENIDATE HCL [Concomitant]
  16. HYDROXYZINE [Concomitant]
  17. PROMETHAZINE [Concomitant]
  18. RANITIDINE [Concomitant]
  19. TAMSULOSIN HCL [Concomitant]
  20. CICLESONIDE [Concomitant]
  21. LINAGTLIPTIN [Concomitant]
  22. ALPRAZOLAM [Concomitant]
  23. OMALIZUMAB [Concomitant]
  24. OMEPRAZOLE [Concomitant]
  25. ONDANSETRON HCL [Concomitant]
  26. BACLOFEN [Concomitant]
  27. METOCLOPRAMIDE [Concomitant]
  28. DICLOFENAC SODIUM [Concomitant]
  29. LIDOCAINE [Concomitant]
  30. CITRUCEL [Concomitant]
  31. MORPHINE SULFATE [Concomitant]
  32. FROVATRIPTAN SUCCINATE [Concomitant]
  33. LACOSAMIDE [Concomitant]

REACTIONS (4)
  - SOMNAMBULISM [None]
  - CONVULSION [None]
  - DEHYDRATION [None]
  - VIRAL INFECTION [None]
